FAERS Safety Report 9696507 (Version 1)
Quarter: 2013Q4

REPORT INFORMATION
  Report Type: Spontaneous
  Country: GB (occurrence: None)
  Receive Date: 20131115
  Receipt Date: 20131115
  Transmission Date: 20140711
  Serious: Yes (Death, Other)
  Sender: FDA-Public Use
  Company Number: CL-532-2013

PATIENT
  Age: 56 Year
  Sex: Male

DRUGS (2)
  1. METRONIDAZOLE [Suspect]
     Indication: CLOSTRIDIUM DIFFICILE INFECTION
     Route: 042
  2. METRONIDAZOLE [Suspect]
     Indication: PROPHYLAXIS
     Route: 042

REACTIONS (3)
  - Status epilepticus [None]
  - Toxic encephalopathy [None]
  - Sepsis [None]
